FAERS Safety Report 19909552 (Version 3)
Quarter: 2021Q4

REPORT INFORMATION
  Report Type: Report from Study
  Country: US (occurrence: US)
  Receive Date: 20211001
  Receipt Date: 20211015
  Transmission Date: 20220303
  Serious: Yes (Hospitalization)
  Sender: FDA-Public Use
  Company Number: US-GILEAD-2021-0550634

PATIENT
  Age: 61 Year
  Sex: Male
  Weight: 102 kg

DRUGS (17)
  1. BREXUCABTAGENE AUTOLEUCEL [Suspect]
     Active Substance: BREXUCABTAGENE AUTOLEUCEL
     Indication: Mantle cell lymphoma
     Dosage: 68
     Route: 042
     Dates: start: 20210920, end: 20210920
  2. FLUDARABINE [Suspect]
     Active Substance: FLUDARABINE PHOSPHATE
     Indication: Bone marrow conditioning regimen
     Dosage: 67
     Route: 042
     Dates: start: 20210912, end: 20210912
  3. FLUDARABINE [Suspect]
     Active Substance: FLUDARABINE PHOSPHATE
     Dosage: 67
     Route: 042
     Dates: start: 20210913, end: 20210913
  4. FLUDARABINE [Suspect]
     Active Substance: FLUDARABINE PHOSPHATE
     Dosage: 67
     Route: 042
     Dates: start: 20210914, end: 20210914
  5. CYCLOPHOSPHAMIDE [Suspect]
     Active Substance: CYCLOPHOSPHAMIDE
     Indication: Bone marrow conditioning regimen
     Dosage: 996
     Route: 042
     Dates: start: 20210912, end: 20210912
  6. CYCLOPHOSPHAMIDE [Suspect]
     Active Substance: CYCLOPHOSPHAMIDE
     Dosage: 996
     Route: 042
     Dates: start: 20210913, end: 20210913
  7. CYCLOPHOSPHAMIDE [Suspect]
     Active Substance: CYCLOPHOSPHAMIDE
     Dosage: 996
     Route: 042
     Dates: start: 20210914, end: 20210914
  8. DEXAMETHASONE [Suspect]
     Active Substance: DEXAMETHASONE
     Indication: Product used for unknown indication
     Dosage: 40
     Route: 065
     Dates: start: 20210825, end: 20210828
  9. OMEPRAZOLE [Concomitant]
     Active Substance: OMEPRAZOLE
     Dosage: 40,MG,DAILY
     Route: 048
     Dates: start: 20201124
  10. VITAMINS NOS [Concomitant]
     Active Substance: VITAMINS
     Dosage: 1,OTHER,DAILY
     Route: 048
     Dates: start: 20210603
  11. PRAVACHOL [Concomitant]
     Active Substance: PRAVASTATIN SODIUM
     Dosage: 40,MG,DAILY
     Route: 048
     Dates: start: 20210718
  12. GABAPENTIN [Concomitant]
     Active Substance: GABAPENTIN
     Dosage: 300,MG,DAILY
     Route: 048
     Dates: start: 20210827
  13. ALLOPURINOL [Concomitant]
     Active Substance: ALLOPURINOL
     Dosage: 300,MG,TWICE DAILY
     Route: 048
     Dates: start: 20210908, end: 20210922
  14. KEPPRA [Concomitant]
     Active Substance: LEVETIRACETAM
     Dosage: 500,MG,OTHER
     Route: 048
     Dates: start: 20210912
  15. LEVAQUIN [Concomitant]
     Active Substance: LEVOFLOXACIN
     Dosage: 500,MG,DAILY
     Route: 048
     Dates: start: 20210912
  16. DIFLUCAN [Concomitant]
     Active Substance: FLUCONAZOLE
     Dosage: 200,MG,DAILY
     Route: 048
     Dates: start: 20210916
  17. VALTREX [Concomitant]
     Active Substance: VALACYCLOVIR HYDROCHLORIDE
     Dosage: 500,MG,TWICE DAILY
     Route: 048
     Dates: start: 20210916

REACTIONS (5)
  - Cytokine release syndrome [Recovered/Resolved]
  - Encephalopathy [Recovered/Resolved]
  - Encephalopathy [Recovered/Resolved]
  - Hypoxia [Recovered/Resolved]
  - Hypotension [Recovered/Resolved]

NARRATIVE: CASE EVENT DATE: 20210928
